FAERS Safety Report 18210389 (Version 1)
Quarter: 2020Q3

REPORT INFORMATION
  Report Type: Spontaneous
  Country: RO (occurrence: RO)
  Receive Date: 20200829
  Receipt Date: 20200829
  Transmission Date: 20201103
  Serious: Yes (Other)
  Sender: FDA-Public Use
  Company Number: RO-ACCORD-197963

PATIENT
  Age: 62 Year
  Sex: Female

DRUGS (1)
  1. CISPLATIN. [Suspect]
     Active Substance: CISPLATIN
     Indication: OVARIAN CANCER

REACTIONS (3)
  - Cerebral atrophy [Unknown]
  - Neurodegenerative disorder [Unknown]
  - Supranuclear palsy [Unknown]
